FAERS Safety Report 20029278 (Version 4)
Quarter: 2022Q1

REPORT INFORMATION
  Report Type: Report from Study
  Country: US (occurrence: US)
  Receive Date: 20211103
  Receipt Date: 20220119
  Transmission Date: 20220424
  Serious: No
  Sender: FDA-Public Use
  Company Number: US-NOVARTISTESTPH-NVSC2021US250760

PATIENT
  Sex: Male
  Weight: 81.179 kg

DRUGS (6)
  1. TREPROSTINIL [Suspect]
     Active Substance: TREPROSTINIL
     Indication: Pulmonary arterial hypertension
     Dosage: 2 DF, UNKNOWN(,NG/KG/MIN)
     Route: 058
     Dates: start: 20211025
  2. TREPROSTINIL [Suspect]
     Active Substance: TREPROSTINIL
     Dosage: 5 UNK(NG/KG/MIN)
     Route: 058
     Dates: start: 20211025
  3. TREPROSTINIL [Suspect]
     Active Substance: TREPROSTINIL
     Dosage: 14.5 UNK NG/KG/MIN
     Route: 058
     Dates: start: 20211025
  4. ELIQUIS [Concomitant]
     Active Substance: APIXABAN
     Indication: Product used for unknown indication
     Dosage: UNK
     Route: 065
  5. SILDENAFIL CITRATE [Concomitant]
     Active Substance: SILDENAFIL CITRATE
     Indication: Product used for unknown indication
     Dosage: UNK
     Route: 065
  6. AMLODIPINE [Concomitant]
     Active Substance: AMLODIPINE BESYLATE
     Indication: Product used for unknown indication
     Dosage: UNK
     Route: 065

REACTIONS (6)
  - Device connection issue [Unknown]
  - Infusion site pain [Unknown]
  - Infusion site discomfort [Unknown]
  - Injection site haemorrhage [Unknown]
  - Infusion site erythema [Unknown]
  - Infusion site swelling [Unknown]
